FAERS Safety Report 8548687-6 (Version None)
Quarter: 2012Q3

REPORT INFORMATION
  Report Type: 
  Country: None (occurrence: None)
  Receive Date: 20120720
  Receipt Date: 20120720
  Transmission Date: 20120928
  Serious: Yes (Life-Threatening)
  Sender: FDA-Public Use
  Company Number: None

PATIENT
  Age: 53 Year
  Sex: Female
  Weight: 65 kg

DRUGS (1)
  1. DILAUDID [Suspect]
     Indication: PAIN
     Dosage: 1.8  MG X2H, 0.8 MG IV X1H IV
     Route: 042
     Dates: start: 20110413, end: 20110413

REACTIONS (1)
  - RESPIRATORY FAILURE [None]
